FAERS Safety Report 10096277 (Version 2)
Quarter: 2014Q2

REPORT INFORMATION
  Report Type: Spontaneous
  Country: US (occurrence: US)
  Receive Date: 20140422
  Receipt Date: 20140422
  Transmission Date: 20141212
  Serious: No
  Sender: FDA-Public Use
  Company Number: US-GILEAD-2012-0059682

PATIENT
  Sex: Female

DRUGS (1)
  1. LETAIRIS [Suspect]
     Indication: PRODUCT USED FOR UNKNOWN INDICATION
     Dosage: 2.5 MG, UNK
     Route: 048
     Dates: start: 20110315

REACTIONS (5)
  - Pain in jaw [Unknown]
  - Back pain [Unknown]
  - Headache [Unknown]
  - Oropharyngeal pain [Unknown]
  - Nasal discomfort [Unknown]
